FAERS Safety Report 9506089 (Version 1)
Quarter: 2013Q1

REPORT INFORMATION
  Report Type: Spontaneous
  Country: US (occurrence: None)
  Receive Date: 20130207
  Receipt Date: 20130207
  Transmission Date: 20140127
  Serious: Yes (Other)
  Sender: FDA-Public Use
  Company Number: 1272899

PATIENT
  Sex: Female

DRUGS (1)
  1. BUPIVACAINE [Suspect]
     Indication: CAESAREAN SECTION
     Dosage: ONE VIAL , UNKNOWN, UNKNOWN , INTRADISCAL
     Dates: start: 20120430

REACTIONS (1)
  - Drug ineffective [None]
